FAERS Safety Report 23960929 (Version 2)
Quarter: 2024Q2

REPORT INFORMATION
  Report Type: Report from Study
  Country: US (occurrence: US)
  Receive Date: 20240611
  Receipt Date: 20240620
  Transmission Date: 20240716
  Serious: No
  Sender: FDA-Public Use
  Company Number: US-AGIOS-2406US03778

PATIENT

DRUGS (1)
  1. MITAPIVAT [Suspect]
     Active Substance: MITAPIVAT
     Indication: Pyruvate kinase deficiency anaemia
     Route: 065

REACTIONS (19)
  - Blood iron increased [Unknown]
  - Osteoporosis [Unknown]
  - Infection susceptibility increased [Unknown]
  - Fatigue [Unknown]
  - Asthenia [Unknown]
  - Dyspnoea [Unknown]
  - Headache [Unknown]
  - Dizziness [Unknown]
  - Pallor [Unknown]
  - Jaundice [Unknown]
  - Brain fog [Unknown]
  - Bone pain [Unknown]
  - Arthralgia [Unknown]
  - Myalgia [Unknown]
  - Memory impairment [Unknown]
  - Sleep disorder [Unknown]
  - Disturbance in attention [Unknown]
  - Exercise tolerance decreased [Unknown]
  - Impaired work ability [Unknown]
